FAERS Safety Report 20742972 (Version 2)
Quarter: 2022Q2

REPORT INFORMATION
  Report Type: Spontaneous
  Country: US (occurrence: US)
  Receive Date: 20220425
  Receipt Date: 20220527
  Transmission Date: 20220720
  Serious: No
  Sender: FDA-Public Use
  Company Number: US-AMGEN-USASP2022063582

PATIENT
  Sex: Female

DRUGS (1)
  1. PROLIA [Suspect]
     Active Substance: DENOSUMAB
     Indication: Product used for unknown indication
     Dosage: UNK
     Route: 065
     Dates: start: 20220329

REACTIONS (5)
  - Nervousness [Unknown]
  - Blood calcium increased [Unknown]
  - Oedema peripheral [Unknown]
  - Pain [Unknown]
  - Paraesthesia [Unknown]

NARRATIVE: CASE EVENT DATE: 20220329
